FAERS Safety Report 6056809-4 (Version None)
Quarter: 2009Q1

REPORT INFORMATION
  Report Type: 
  Country: None (occurrence: None)
  Receive Date: 20090129
  Receipt Date: 20090119
  Transmission Date: 20090719
  Serious: Yes (Other)
  Sender: FDA-Public Use
  Company Number: CH-PFIZER INC-2009157512

PATIENT

DRUGS (2)
  1. HEPARIN SODIUM [Suspect]
  2. ASPIRIN [Concomitant]

REACTIONS (2)
  - CEREBROVASCULAR DISORDER [None]
  - HEPARIN-INDUCED THROMBOCYTOPENIA [None]
